FAERS Safety Report 9127107 (Version 1)
Quarter: 2013Q1

REPORT INFORMATION
  Report Type: Spontaneous
  Country: US (occurrence: US)
  Receive Date: 20130122
  Receipt Date: 20130122
  Transmission Date: 20140127
  Serious: No
  Sender: FDA-Public Use
  Company Number: US-MYLANLABS-2012S1008214

PATIENT
  Age: 47 Year
  Sex: Female

DRUGS (5)
  1. LETROZOLE [Suspect]
     Indication: BREAST CANCER
     Dates: start: 201109
  2. MULTIVITAMIN [Concomitant]
  3. VITAMIN D [Concomitant]
  4. ASPIRIN [Concomitant]
     Dosage: LOW DOSE
  5. LOTREL [Concomitant]
     Indication: BLOOD PRESSURE

REACTIONS (4)
  - Bone pain [Recovered/Resolved]
  - Musculoskeletal stiffness [Recovered/Resolved]
  - Arthralgia [Recovered/Resolved]
  - Fatigue [Recovered/Resolved]
